FAERS Safety Report 18660937 (Version 1)
Quarter: 2020Q4

REPORT INFORMATION
  Report Type: Other
  Country: GB (occurrence: GB)
  Receive Date: 20201224
  Receipt Date: 20201224
  Transmission Date: 20210114
  Serious: Yes (Disabling, Other)
  Sender: FDA-Public Use
  Company Number: GB-STRIDES ARCOLAB LIMITED-2020SP015924

PATIENT
  Age: 26 Year
  Sex: Female
  Weight: 63.95 kg

DRUGS (7)
  1. HYDROCORTISONE. [Suspect]
     Active Substance: HYDROCORTISONE
     Dosage: 1%, DAILY WHEN NEEDED (RECOMMENDATION ^USE TWICE DAILY^)
     Route: 061
     Dates: start: 20020213, end: 20200604
  2. HYDROCORTISONE. [Suspect]
     Active Substance: HYDROCORTISONE
     Indication: ECZEMA
     Dosage: 1%, DAILY WHEN NEEDED (RECOMMENDATION ^USE TWICE DAILY^)
     Route: 061
     Dates: start: 2019, end: 20200604
  3. HYDROCORTISONE. [Suspect]
     Active Substance: HYDROCORTISONE
     Dosage: UNK
  4. BETAMETHASONE;FUSIDIC ACID [Suspect]
     Active Substance: BETAMETHASONE\FUSIDIC ACID
     Indication: ECZEMA
     Dosage: 0.1%, DAILY WHEN NEEDED, RECOMMENDATION ^APPLY THINLY TWICE A DAY^
     Route: 061
     Dates: start: 20150310, end: 20150422
  5. OTOMIZE [DEXAMETHASONE\NEOMYCIN SULFATE] [Suspect]
     Active Substance: DEXAMETHASONE\NEOMYCIN SULFATE
     Indication: EAR INFECTION
     Dosage: UNK UNK, AS NECESSARY, DAILY
     Route: 065
     Dates: end: 20200604
  6. MOMETASONE FUROATE. [Suspect]
     Active Substance: MOMETASONE FUROATE
     Indication: ECZEMA
     Dosage: 0.1%, DAILY WHEN NEEDED (RECOMMENDATION ^USE TWICE DAILY^)
     Route: 061
     Dates: end: 20200604
  7. EUMOVATE [Suspect]
     Active Substance: CLOBETASONE BUTYRATE
     Indication: ECZEMA
     Dosage: 0.05%, DAILY WHEN NEEDED, RECOMMENDATION USE 1-2 TIMES
     Route: 061
     Dates: start: 20120304, end: 20120624

REACTIONS (17)
  - Steroid withdrawal syndrome [Recovered/Resolved]
  - Skin exfoliation [Recovered/Resolved]
  - Menstruation delayed [Recovered/Resolved]
  - Eye swelling [Recovered/Resolved]
  - Skin atrophy [Recovered/Resolved]
  - Medication error [Unknown]
  - Depression suicidal [Recovered/Resolved]
  - Erythema [Recovered/Resolved]
  - Alopecia [Recovered/Resolved]
  - Skin infection [Recovered/Resolved]
  - Peripheral swelling [Recovered/Resolved]
  - Lymphadenopathy [Recovered/Resolved]
  - Skin weeping [Recovered/Resolved]
  - Lymphadenopathy [Recovered/Resolved]
  - Temperature regulation disorder [Recovered/Resolved]
  - Pruritus [Recovered/Resolved]
  - Hyperaesthesia [Recovered/Resolved]

NARRATIVE: CASE EVENT DATE: 20200610
